FAERS Safety Report 14926796 (Version 1)
Quarter: 2018Q2

REPORT INFORMATION
  Report Type: Spontaneous
  Country: FR (occurrence: FR)
  Receive Date: 20180523
  Receipt Date: 20180523
  Transmission Date: 20180711
  Serious: Yes (Other)
  Sender: FDA-Public Use
  Company Number: FR-MERCK KGAA-2048273

PATIENT
  Sex: Female

DRUGS (1)
  1. NOVOTHYROX [Suspect]
     Active Substance: LEVOTHYROXINE SODIUM
     Indication: THYROIDITIS

REACTIONS (9)
  - Fatigue [None]
  - Alopecia [None]
  - Myalgia [None]
  - Apathy [None]
  - Impaired work ability [None]
  - Decreased interest [None]
  - Depressed mood [None]
  - Dyspnoea at rest [None]
  - Irritability [None]
